FAERS Safety Report 6882553-7 (Version None)
Quarter: 2010Q3

REPORT INFORMATION
  Report Type: 
  Country: None (occurrence: None)
  Receive Date: 20100729
  Receipt Date: 20100322
  Transmission Date: 20110219
  Serious: No
  Sender: FDA-Public Use
  Company Number: -MYLANLABS-2010S1005017

PATIENT
  Sex: Female

DRUGS (7)
  1. FENTANYL-100 [Suspect]
     Indication: PAIN
     Route: 062
  2. MIRTAZAPINE [Suspect]
  3. TRAZODONE [Suspect]
  4. LYRICA [Concomitant]
  5. COUMADIN [Concomitant]
  6. METOPROLOL SUCCINATE [Concomitant]
  7. PREDNISONE [Concomitant]
     Route: 048

REACTIONS (4)
  - DRUG EFFECT INCREASED [None]
  - PYREXIA [None]
  - SOMNOLENCE [None]
  - TREMOR [None]
